FAERS Safety Report 9835330 (Version 2)
Quarter: 2014Q2

REPORT INFORMATION
  Report Type: Spontaneous
  Country: US (occurrence: US)
  Receive Date: 20140122
  Receipt Date: 20140424
  Transmission Date: 20141212
  Serious: Yes (Hospitalization)
  Sender: FDA-Public Use
  Company Number: US-BRISTOL-MYERS SQUIBB COMPANY-19936780

PATIENT
  Age: 67 Year
  Sex: Male

DRUGS (16)
  1. ELIQUIS [Suspect]
     Indication: ATRIAL FIBRILLATION
     Route: 048
     Dates: end: 20131220
  2. ELIQUIS [Suspect]
     Indication: CEREBROVASCULAR ACCIDENT PROPHYLAXIS
     Route: 048
     Dates: end: 20131220
  3. ASPIRIN [Suspect]
     Route: 048
  4. HYDRALAZINE [Concomitant]
     Dosage: 1DF=75 UNITS NOS
  5. LISINOPRIL [Concomitant]
  6. FLECAINIDE [Concomitant]
  7. CALCITRIOL [Concomitant]
     Dosage: 1DF=.25 UNITS NOS
  8. LIPITOR [Concomitant]
  9. FUROSEMIDE [Concomitant]
  10. COLCHICINE [Concomitant]
  11. TRAMADOL [Concomitant]
  12. ACETAMINOPHEN [Concomitant]
  13. ALLOPURINOL [Concomitant]
  14. POTASSIUM [Concomitant]
  15. AMLODIPINE [Concomitant]
  16. LABETALOL [Concomitant]

REACTIONS (1)
  - Rectal haemorrhage [Recovered/Resolved]
